FAERS Safety Report 7268244-1 (Version None)
Quarter: 2011Q1

REPORT INFORMATION
  Report Type: 
  Country: None (occurrence: None)
  Receive Date: 20110121
  Receipt Date: 20101119
  Transmission Date: 20110831
  Serious: Yes (Other)
  Sender: FDA-Public Use
  Company Number: 2010BI035664

PATIENT
  Age: 60 Year
  Sex: Female
  Weight: 51.6 kg

DRUGS (10)
  1. RITUXAN [Concomitant]
  2. ANTIHISTAMINES [Concomitant]
  3. BAKTAR [Concomitant]
  4. LASTET [Concomitant]
  5. SOLU-CORTEF [Concomitant]
  6. GLAKAY [Concomitant]
  7. GASTER D [Concomitant]
  8. DECADRON [Concomitant]
  9. ZEVALIN [Suspect]
     Indication: FOLLICLE CENTRE LYMPHOMA, FOLLICULAR GRADE I, II, III STAGE IV
     Dosage: 764 MBQ;1X;IV
     Route: 042
     Dates: start: 20100413, end: 20100427
  10. HYDROCORTONE [Concomitant]

REACTIONS (5)
  - NEUTROPHIL COUNT DECREASED [None]
  - PLATELET COUNT DECREASED [None]
  - CHEST PAIN [None]
  - ANAEMIA [None]
  - INFUSION RELATED REACTION [None]
